FAERS Safety Report 4724481-9 (Version None)
Quarter: 2005Q3

REPORT INFORMATION
  Report Type: 
  Country: None (occurrence: None)
  Receive Date: 20050721
  Receipt Date: 20050707
  Transmission Date: 20060218
  Serious: Yes (Hospitalization)
  Sender: FDA-Public Use
  Company Number: 2005096614

PATIENT
  Sex: Male

DRUGS (1)
  1. XANAX [Suspect]
     Indication: SLEEP DISORDER
     Dosage: 0.125 MG (0.25 MG, 1 IN 1 D), ORAL
     Route: 048

REACTIONS (2)
  - DRUG INEFFECTIVE [None]
  - INSOMNIA [None]
